FAERS Safety Report 8144016-0 (Version None)
Quarter: 2012Q1

REPORT INFORMATION
  Report Type: 
  Country: None (occurrence: None)
  Receive Date: 20120217
  Receipt Date: 20120217
  Transmission Date: 20120608
  Serious: Yes (Life-Threatening, Other)
  Sender: FDA-Public Use
  Company Number: None

PATIENT
  Age: 63 Year
  Sex: Female
  Weight: 58.967 kg

DRUGS (1)
  1. LEVETIRACETAM [Suspect]
     Indication: EPILEPSY
     Dosage: 3 TABS
     Route: 048
     Dates: start: 20111101, end: 20120213

REACTIONS (6)
  - DIZZINESS [None]
  - PRODUCT SUBSTITUTION ISSUE [None]
  - SYNCOPE [None]
  - HYPERHIDROSIS [None]
  - MEDICATION RESIDUE [None]
  - NAUSEA [None]
